FAERS Safety Report 5647727-1 (Version None)
Quarter: 2008Q1

REPORT INFORMATION
  Report Type: 
  Country: None (occurrence: None)
  Receive Date: 20080303
  Receipt Date: 20080222
  Transmission Date: 20080703
  Serious: Yes (Hospitalization, Other)
  Sender: FDA-Public Use
  Company Number: JP-PFIZER INC-2008011140

PATIENT
  Age: 79 Year
  Sex: Female

DRUGS (1)
  1. SOLU-MEDROL [Suspect]
     Indication: OPTIC NEURITIS
     Dosage: DAILY DOSE:1000MG
     Route: 042

REACTIONS (3)
  - BONE DENSITY DECREASED [None]
  - FALL [None]
  - FEMORAL NECK FRACTURE [None]
